FAERS Safety Report 9333816 (Version 3)
Quarter: 2014Q2

REPORT INFORMATION
  Report Type: Spontaneous
  Country: CA (occurrence: None)
  Receive Date: 20130604
  Receipt Date: 20140527
  Transmission Date: 20141212
  Serious: Yes (Hospitalization, Other)
  Sender: FDA-Public Use
  Company Number: 2013000120

PATIENT
  Age: 68 Year
  Sex: Female
  Weight: 98 kg

DRUGS (16)
  1. ACEON [Suspect]
     Indication: PRODUCT USED FOR UNKNOWN INDICATION
     Dates: start: 2013, end: 20130517
  2. ACTEMRA [Suspect]
     Indication: RHEUMATOID ARTHRITIS
     Dosage: 1 DF, EVERY 4 WEEKS, INTRAVENOUS
     Route: 042
     Dates: start: 20100621
  3. LIPITOR (ATORVASTATIN CALCIUM) [Suspect]
     Indication: PRODUCT USED FOR UNKNOWN INDICATION
     Dates: start: 2013, end: 20130517
  4. APO-NADOL [Suspect]
     Indication: PRODUCT USED FOR UNKNOWN INDICATION
     Dates: start: 2013, end: 20130517
  5. TYLENOL (PARACETAMOL) [Concomitant]
  6. EFFEXOR (VANLAFAXINE HYDROCHLORIDE) [Concomitant]
  7. ZOCOR (SIMVASTATIN) [Suspect]
  8. XANAX (ALPRAZOLAM) [Concomitant]
  9. DELATESTRYL (TESTOSTERONE ENANTATE) [Concomitant]
  10. DELESTROGEN (ESTRADIOL VALERATE) [Concomitant]
  11. VITAMIN D (VITAMIN D) [Concomitant]
  12. CALCIUM (CALCIUM) [Concomitant]
  13. COZAAR (LOSARTAN POTASSIUM) (50 MILLIGRAM, TABLETS) (LOSARTAN POTASSIUM) [Concomitant]
  14. FURSOSEMIDE (FUROSEMIDE) [Concomitant]
  15. LEVOTHYROXINE (LEVOTHYROXINE) [Suspect]
     Indication: PRODUCT USED FOR UNKNOWN INDICATION
  16. SYNTHROID (LEVOTHYROXINE SODIUM) [Concomitant]

REACTIONS (32)
  - Cardiac failure congestive [None]
  - Dyspnoea [None]
  - Gait disturbance [None]
  - Atrial fibrillation [None]
  - Rectal haemorrhage [None]
  - Abdominal pain [None]
  - Bronchitis [None]
  - Diarrhoea [None]
  - Dysphonia [None]
  - Migraine [None]
  - Musculoskeletal pain [None]
  - Ear congestion [None]
  - Pain in extremity [None]
  - Weight decreased [None]
  - Bacterial infection [None]
  - Blood pressure decreased [None]
  - Fatigue [None]
  - Fungal infection [None]
  - Heart rate irregular [None]
  - Oral herpes [None]
  - Sciatica [None]
  - Stress [None]
  - Weight increased [None]
  - Thyroid disorder [None]
  - Arthralgia [None]
  - Asthenia [None]
  - Cough [None]
  - Headache [None]
  - Rash [None]
  - Myalgia [None]
  - Nasopharyngitis [None]
  - Inflammation [None]
